FAERS Safety Report 20496892 (Version 2)
Quarter: 2022Q2

REPORT INFORMATION
  Report Type: Spontaneous
  Country: JP (occurrence: JP)
  Receive Date: 20220221
  Receipt Date: 20220411
  Transmission Date: 20220720
  Serious: Yes (Death, Hospitalization, Other)
  Sender: FDA-Public Use
  Company Number: JP-ELI_LILLY_AND_COMPANY-JP202202005977

PATIENT
  Age: 83 Year
  Sex: Female

DRUGS (2)
  1. VERZENIO [Suspect]
     Active Substance: ABEMACICLIB
     Indication: Breast cancer recurrent
     Dosage: 200 MG, UNKNOWN
     Route: 048
     Dates: start: 202111
  2. VERZENIO [Suspect]
     Active Substance: ABEMACICLIB
     Dosage: 300 MG, UNKNOWN
     Route: 048
     Dates: start: 202112

REACTIONS (6)
  - Pneumonia [Fatal]
  - Malignant neoplasm progression [Not Recovered/Not Resolved]
  - Hyponatraemia [Unknown]
  - Decreased appetite [Not Recovered/Not Resolved]
  - Diarrhoea [Not Recovered/Not Resolved]
  - Nausea [Not Recovered/Not Resolved]

NARRATIVE: CASE EVENT DATE: 20220101
